FAERS Safety Report 13169960 (Version 1)
Quarter: 2017Q1

REPORT INFORMATION
  Report Type: Spontaneous
  Country: CA (occurrence: CA)
  Receive Date: 20170201
  Receipt Date: 20170201
  Transmission Date: 20170428
  Serious: Yes (Other)
  Sender: FDA-Public Use
  Company Number: CA-TEVA-734196ACC

PATIENT
  Age: 53 Year
  Sex: Female

DRUGS (7)
  1. QUINAPRIL. [Concomitant]
     Active Substance: QUINAPRIL
  2. VENLAFAXINE XR [Concomitant]
     Active Substance: VENLAFAXINE HYDROCHLORIDE
  3. TRAMCET [Concomitant]
     Active Substance: ACETAMINOPHEN\TRAMADOL
  4. METFORMIN [Concomitant]
     Active Substance: METFORMIN HYDROCHLORIDE
  5. GABAPENTIN. [Suspect]
     Active Substance: GABAPENTIN
     Indication: NEURALGIA
  6. RABEPRAZOLE [Concomitant]
     Active Substance: RABEPRAZOLE
  7. GABAPENTIN. [Suspect]
     Active Substance: GABAPENTIN
     Indication: PAIN IN EXTREMITY
     Dosage: 300 MILLIGRAM DAILY;
     Route: 065

REACTIONS (5)
  - Self esteem decreased [Recovered/Resolved]
  - Suicidal ideation [Recovered/Resolved]
  - Merycism [Recovered/Resolved]
  - Depression [Recovered/Resolved]
  - Feeling of despair [Recovered/Resolved]
